FAERS Safety Report 11076026 (Version 2)
Quarter: 2015Q2

REPORT INFORMATION
  Report Type: Spontaneous
  Country: US (occurrence: US)
  Receive Date: 20150429
  Receipt Date: 20150511
  Transmission Date: 20150821
  Serious: Yes (Hospitalization)
  Sender: FDA-Public Use
  Company Number: US-LPDUSPRD-20150239

PATIENT
  Age: 55 Year
  Sex: Female

DRUGS (1)
  1. ATROPINE SULFATE INJECTION, USP (0101-25) 1MG/ML [Suspect]
     Active Substance: ATROPINE SULFATE
     Dosage: 0.5 MG (0.01 MG/KG)
     Route: 065

REACTIONS (3)
  - Atrioventricular block complete [Recovered/Resolved]
  - Ventricular asystole [None]
  - Syncope [None]
